FAERS Safety Report 21365435 (Version 1)
Quarter: 2022Q3

REPORT INFORMATION
  Report Type: Spontaneous
  Country: DE (occurrence: DE)
  Receive Date: 20220922
  Receipt Date: 20220922
  Transmission Date: 20221027
  Serious: Yes (Death, Other)
  Sender: FDA-Public Use
  Company Number: DE-BRISTOL-MYERS SQUIBB COMPANY-2022-110571

PATIENT
  Age: 76 Year
  Sex: Female

DRUGS (1)
  1. ONUREG [Suspect]
     Active Substance: AZACITIDINE
     Indication: Acute myeloid leukaemia
     Dosage: MAINTENANCE,  ONGOING CR, 02-JUN-2022 -5 CYCLES WITHOUT SERIOUS AES, NO INTERRUPTION, NO DOSE REDUCT
     Route: 065
     Dates: start: 202202

REACTIONS (1)
  - Death [Fatal]
